FAERS Safety Report 7306808-7 (Version None)
Quarter: 2011Q1

REPORT INFORMATION
  Report Type: 
  Country: None (occurrence: None)
  Receive Date: 20110223
  Receipt Date: 20110214
  Transmission Date: 20110831
  Serious: Yes (Other)
  Sender: FDA-Public Use
  Company Number: NO-AMGEN-NORSP2011009580

PATIENT
  Age: 57 Year
  Sex: Female

DRUGS (1)
  1. ENBREL [Suspect]
     Indication: PRODUCT USED FOR UNKNOWN INDICATION
     Dosage: UNK

REACTIONS (7)
  - SKIN PLAQUE [None]
  - INFECTION [None]
  - ALOPECIA [None]
  - WEIGHT DECREASED [None]
  - ANAEMIA [None]
  - FATIGUE [None]
  - LYMPH NODE PAIN [None]
